FAERS Safety Report 5103192-4 (Version None)
Quarter: 2006Q3

REPORT INFORMATION
  Report Type: 
  Country: None (occurrence: None)
  Receive Date: 20060912
  Receipt Date: 20060912
  Transmission Date: 20061208
  Serious: Yes (Other)
  Sender: FDA-Public Use
  Company Number: None

PATIENT
  Sex: Female
  Weight: 86.1834 kg

DRUGS (1)
  1. DURAGESIC-100 [Suspect]
     Indication: KLIPPEL-FEIL SYNDROME
     Dosage: 50 MCG 3 DAY DOSES
     Dates: start: 20060817

REACTIONS (2)
  - MALABSORPTION [None]
  - NAUSEA [None]
